FAERS Safety Report 13937154 (Version 1)
Quarter: 2017Q3

REPORT INFORMATION
  Report Type: Spontaneous
  Country: US (occurrence: US)
  Receive Date: 20170905
  Receipt Date: 20170905
  Transmission Date: 20171127
  Serious: Yes (Life-Threatening)
  Sender: FDA-Public Use
  Company Number: PHHY2017US129272

PATIENT
  Age: 36 Year
  Sex: Female

DRUGS (1)
  1. METOCLOPRAMIDE. [Suspect]
     Active Substance: METOCLOPRAMIDE
     Indication: NAUSEA
     Route: 065

REACTIONS (12)
  - Multiple organ dysfunction syndrome [Recovering/Resolving]
  - Cardiogenic shock [Unknown]
  - Myocardial ischaemia [Unknown]
  - Hyperhidrosis [Unknown]
  - Acute respiratory distress syndrome [Unknown]
  - Acute kidney injury [Unknown]
  - Phaeochromocytoma [Unknown]
  - Acute hepatic failure [Unknown]
  - Blood pressure increased [Unknown]
  - Restlessness [Unknown]
  - Chest pain [Unknown]
  - Tachycardia [Unknown]
